FAERS Safety Report 6194096-7 (Version None)
Quarter: 2009Q2

REPORT INFORMATION
  Report Type: 
  Country: None (occurrence: None)
  Receive Date: 20090518
  Receipt Date: 20090511
  Transmission Date: 20091009
  Serious: No
  Sender: FDA-Public Use
  Company Number: US-B.I. PHARMACEUTICALS,INC./RIDGEFIELD-2009-BP-05946BP

PATIENT
  Sex: Male

DRUGS (10)
  1. SPIRIVA [Suspect]
     Indication: CHRONIC OBSTRUCTIVE PULMONARY DISEASE
     Dosage: 18MCG
     Route: 055
     Dates: start: 20080801
  2. ASPIRIN [Concomitant]
     Indication: VASCULAR GRAFT
     Dates: start: 19980101
  3. CRESTOR [Concomitant]
     Indication: BLOOD CHOLESTEROL INCREASED
  4. FLOMAX [Concomitant]
     Indication: PROSTATOMEGALY
     Dates: start: 20050101
  5. PLAVIX [Concomitant]
     Indication: VASCULAR GRAFT
     Dates: start: 20080101
  6. ZETIA [Concomitant]
     Indication: BLOOD CHOLESTEROL INCREASED
     Dates: start: 19990101
  7. TRICOR [Concomitant]
     Indication: BLOOD CHOLESTEROL INCREASED
  8. METOPROLOL [Concomitant]
     Indication: VASCULAR GRAFT
     Dates: start: 19980101
  9. IMDUR [Concomitant]
     Indication: VASCULAR GRAFT
     Dates: start: 19980101
  10. RESTASIS [Concomitant]
     Indication: VISION BLURRED
     Dates: start: 20000101

REACTIONS (2)
  - DYSPEPSIA [None]
  - VISION BLURRED [None]
